FAERS Safety Report 8336870-4 (Version None)
Quarter: 2012Q2

REPORT INFORMATION
  Report Type: 
  Country: None (occurrence: None)
  Receive Date: 20120504
  Receipt Date: 20110505
  Transmission Date: 20120825
  Serious: No
  Sender: FDA-Public Use
  Company Number: US-TEVA-2011002219

PATIENT
  Sex: Female
  Weight: 72.64 kg

DRUGS (3)
  1. ACTIVELLA [Concomitant]
     Dates: start: 20090101
  2. NUVIGIL [Suspect]
     Indication: POOR QUALITY SLEEP
     Route: 048
     Dates: start: 20110401, end: 20110504
  3. IBUPROFEN (ADVIL) [Concomitant]

REACTIONS (1)
  - HEADACHE [None]
